FAERS Safety Report 10570296 (Version 1)
Quarter: 2014Q4

REPORT INFORMATION
  Report Type: Spontaneous
  Country: US (occurrence: None)
  Receive Date: 20141106
  Receipt Date: 20141106
  Transmission Date: 20150529
  Serious: No
  Sender: FDA-Public Use
  Company Number: None

PATIENT
  Age: 63 Year
  Sex: Female
  Weight: 83.92 kg

DRUGS (13)
  1. DURAGESIC [Suspect]
     Active Substance: FENTANYL
     Indication: KNEE ARTHROPLASTY
     Dosage: ON THE SKIN
     Dates: start: 20131205, end: 20131208
  2. CHONDROITIN SULFATE (BOVINE)\GLUCOSAMINE SULFATE [Concomitant]
     Active Substance: CHONDROITIN SULFATE (BOVINE)\GLUCOSAMINE SULFATE
  3. LYRICA [Concomitant]
     Active Substance: PREGABALIN
  4. FISH OIL [Concomitant]
     Active Substance: FISH OIL
  5. LUTEIN [Concomitant]
     Active Substance: LUTEIN
  6. DURAGESIC [Suspect]
     Active Substance: FENTANYL
     Indication: PROCEDURAL PAIN
     Dosage: ON THE SKIN
     Dates: start: 20131205, end: 20131208
  7. TRAMADOL [Concomitant]
     Active Substance: TRAMADOL
  8. VITAMIN C [Concomitant]
     Active Substance: ASCORBIC ACID
  9. PRAVASTATIN [Concomitant]
     Active Substance: PRAVASTATIN\PRAVASTATIN SODIUM
  10. ASPIRIN. [Concomitant]
     Active Substance: ASPIRIN
  11. LORAZEPAM. [Concomitant]
     Active Substance: LORAZEPAM
  12. VALSARTAN. [Concomitant]
     Active Substance: VALSARTAN
  13. CALCIUM CITRATE [Concomitant]
     Active Substance: CALCIUM CITRATE

REACTIONS (6)
  - Acute myocardial infarction [None]
  - Respiratory arrest [None]
  - Wound haemorrhage [None]
  - Toxicity to various agents [None]
  - Pulmonary congestion [None]
  - Unresponsive to stimuli [None]

NARRATIVE: CASE EVENT DATE: 20131204
